FAERS Safety Report 14800772 (Version 1)
Quarter: 2018Q2

REPORT INFORMATION
  Report Type: Spontaneous
  Country: DE (occurrence: DE)
  Receive Date: 20180424
  Receipt Date: 20180424
  Transmission Date: 20180711
  Serious: Yes (Hospitalization, Other)
  Sender: FDA-Public Use
  Company Number: DE-TEVA-2018-DE-884971

PATIENT
  Age: 64 Year
  Sex: Female

DRUGS (8)
  1. CANDESARTAN HEUMANN [Suspect]
     Active Substance: CANDESARTAN CILEXETIL
     Dosage: 8 MILLIGRAM DAILY; AMBULANT
     Dates: end: 20170209
  2. METAMIZOL [Concomitant]
     Active Substance: METAMIZOLE SODIUM
     Dosage: 1000 MILLIGRAM DAILY;
     Dates: start: 20170209, end: 20170211
  3. VENLAFAXIN [Concomitant]
     Active Substance: VENLAFAXINE HYDROCHLORIDE
     Dosage: 37.5 MILLIGRAM DAILY;
     Dates: start: 20170210, end: 20170211
  4. VALSARTAN. [Suspect]
     Active Substance: VALSARTAN
     Dosage: 80 MILLIEQUIVALENTS DAILY;
     Dates: start: 20170210, end: 20170211
  5. LITHIUM APOGEPHA [Suspect]
     Active Substance: LITHIUM CARBONATE
     Dosage: 900 MILLIGRAM DAILY;
     Dates: start: 20170209, end: 20170211
  6. IBUPROFEN. [Suspect]
     Active Substance: IBUPROFEN
     Dosage: 1200 MILLIGRAM DAILY;
     Dates: start: 20170209, end: 20170211
  7. THYRONAJOD [Concomitant]
     Active Substance: LEVOTHYROXINE SODIUM\POTASSIUM IODIDE
     Dosage: 200 MICROGRAM DAILY;
     Dates: start: 20170209, end: 20170211
  8. PANTOPRAZOL ABZ [Concomitant]
     Active Substance: PANTOPRAZOLE SODIUM
     Dosage: 40 MILLIGRAM DAILY;
     Dates: start: 20170209, end: 20170211

REACTIONS (3)
  - Altered state of consciousness [Recovered/Resolved]
  - Toxicity to various agents [Recovered/Resolved]
  - Somnolence [Recovered/Resolved]

NARRATIVE: CASE EVENT DATE: 20170211
